FAERS Safety Report 5945937-7 (Version None)
Quarter: 2008Q4

REPORT INFORMATION
  Report Type: 
  Country: None (occurrence: None)
  Receive Date: 20081110
  Receipt Date: 20081106
  Transmission Date: 20090506
  Serious: Yes (Hospitalization)
  Sender: FDA-Public Use
  Company Number: ES-BRISTOL-MYERS SQUIBB COMPANY-14397202

PATIENT
  Sex: Male

DRUGS (3)
  1. FOSITENS [Suspect]
     Indication: HYPERTENSION
     Dosage: 20 MG TABLET, 28 TABLETS
     Route: 048
     Dates: start: 20030101
  2. ARTEDIL [Suspect]
     Indication: HYPERTENSION
     Dosage: 10 MG TABLETS, 28 TABLETS
     Route: 048
     Dates: start: 20070101
  3. DOLALGIAL [Suspect]
     Indication: MIGRAINE
     Dosage: 125 MG COATED TABLETS, 10 TABLETS.
     Route: 048
     Dates: start: 20080101, end: 20080708

REACTIONS (2)
  - RENAL FAILURE [None]
  - RENAL HAEMORRHAGE [None]
